FAERS Safety Report 24730834 (Version 2)
Quarter: 2025Q1

REPORT INFORMATION
  Report Type: Spontaneous
  Country: US (occurrence: US)
  Receive Date: 20241213
  Receipt Date: 20250217
  Transmission Date: 20250408
  Serious: Yes (Other)
  Sender: SANOFI AVENTIS
  Company Number: US-SA-2024SA366134

PATIENT
  Sex: Male
  Weight: 85.45 kg

DRUGS (4)
  1. DUPIXENT [Suspect]
     Active Substance: DUPILUMAB
     Indication: Dermatitis atopic
     Dosage: 300 MG, QOW
     Route: 058
  2. BIMZELX [Suspect]
     Active Substance: BIMEKIZUMAB-BKZX
     Route: 065
  3. OTEZLA [Concomitant]
     Active Substance: APREMILAST
  4. TALTZ [Concomitant]
     Active Substance: IXEKIZUMAB

REACTIONS (6)
  - Suicidal ideation [Unknown]
  - Pain [Unknown]
  - Depressed mood [Unknown]
  - Gait disturbance [Unknown]
  - Psoriasis [Unknown]
  - Drug ineffective [Unknown]
